FAERS Safety Report 22221763 (Version 1)
Quarter: 2023Q2

REPORT INFORMATION
  Report Type: Report from Study
  Country: JP (occurrence: None)
  Receive Date: 20230418
  Receipt Date: 20230418
  Transmission Date: 20230722
  Serious: Yes (Hospitalization)
  Sender: FDA-Public Use
  Company Number: JP-Merck Healthcare KGaA-9396716

PATIENT
  Age: 76 Year
  Sex: Female
  Weight: 51 kg

DRUGS (3)
  1. METGLUCO [Suspect]
     Active Substance: METFORMIN HYDROCHLORIDE
     Indication: Diabetes mellitus
     Route: 048
     Dates: start: 20230209
  2. CANDESARTAN [Concomitant]
     Active Substance: CANDESARTAN
     Indication: Blood pressure management
     Dates: start: 20200219
  3. RALOXIFENE HYDROCHLORIDE [Concomitant]
     Active Substance: RALOXIFENE HYDROCHLORIDE
     Indication: Osteoporosis
     Dates: start: 20210728

REACTIONS (1)
  - Melaena [Not Recovered/Not Resolved]

NARRATIVE: CASE EVENT DATE: 20230331
